FAERS Safety Report 7008112-3 (Version None)
Quarter: 2010Q3

REPORT INFORMATION
  Report Type: 
  Country: None (occurrence: None)
  Receive Date: 20100917
  Receipt Date: 20100914
  Transmission Date: 20110219
  Serious: Yes (Disabling, Other)
  Sender: FDA-Public Use
  Company Number: 2010SP048967

PATIENT
  Age: 43 Year
  Sex: Female
  Weight: 47 kg

DRUGS (4)
  1. MIRTAZAPINE [Suspect]
     Indication: DEPRESSION
     Dosage: PO
     Route: 048
     Dates: start: 20100820, end: 20100906
  2. DOMPERIDONE [Concomitant]
  3. HYOSCINE [Concomitant]
  4. PROZAC [Concomitant]

REACTIONS (8)
  - ARTHRALGIA [None]
  - FLUID RETENTION [None]
  - HUNGER [None]
  - JOINT SWELLING [None]
  - OEDEMA PERIPHERAL [None]
  - PAIN [None]
  - PAIN IN EXTREMITY [None]
  - WEIGHT INCREASED [None]
